FAERS Safety Report 9652854 (Version 1)
Quarter: 2013Q4

REPORT INFORMATION
  Report Type: Spontaneous
  Country: JP (occurrence: JP)
  Receive Date: 20131029
  Receipt Date: 20131029
  Transmission Date: 20140711
  Serious: Yes (Other)
  Sender: FDA-Public Use
  Company Number: JP-PFIZER INC-2013306436

PATIENT
  Sex: Male

DRUGS (2)
  1. NORVASC [Suspect]
     Dosage: UNK
  2. FAMOTIDINE [Concomitant]

REACTIONS (3)
  - Atrial fibrillation [Recovered/Resolved]
  - Cerebral infarction [Unknown]
  - Extrasystoles [Not Recovered/Not Resolved]
